FAERS Safety Report 7957757-2 (Version None)
Quarter: 2011Q4

REPORT INFORMATION
  Report Type: 
  Country: None (occurrence: None)
  Receive Date: 20111205
  Receipt Date: 20111130
  Transmission Date: 20120403
  Serious: Yes (Other)
  Sender: FDA-Public Use
  Company Number: PHHY2010JP18304

PATIENT
  Sex: Male

DRUGS (5)
  1. TASIGNA [Suspect]
     Indication: CHRONIC MYELOID LEUKAEMIA
     Dosage: 800 MG DAILY
     Route: 048
     Dates: start: 20091215, end: 20100118
  2. TASIGNA [Suspect]
     Dosage: 400 MG/DAY
     Route: 048
     Dates: start: 20100119, end: 20100201
  3. LANSOPRAZOLE [Concomitant]
     Dosage: 15 MG
     Route: 048
     Dates: start: 20091208, end: 20100208
  4. FERROUS CITRATE [Concomitant]
     Dosage: 100 MG
     Dates: start: 20091208, end: 20100208
  5. TASIGNA [Suspect]
     Dosage: 400 MG/DAY
     Route: 048
     Dates: start: 20100323, end: 20100412

REACTIONS (4)
  - PLATELET COUNT DECREASED [None]
  - CELLULITIS [None]
  - WHITE BLOOD CELL COUNT DECREASED [None]
  - BLOOD GLUCOSE INCREASED [None]
